FAERS Safety Report 6250756-0 (Version None)
Quarter: 2009Q2

REPORT INFORMATION
  Report Type: 
  Country: None (occurrence: None)
  Receive Date: 20090630
  Receipt Date: 20080915
  Transmission Date: 20091009
  Serious: No
  Sender: FDA-Public Use
  Company Number: US-ABBOTT-08P-163-0476314-00

PATIENT
  Sex: Female

DRUGS (1)
  1. ZEMPLAR [Suspect]
     Indication: HYPERPARATHYROIDISM
     Dosage: MAY HAVE TAKEN 1 OR 2 DOSES
     Route: 058
     Dates: start: 20080911

REACTIONS (2)
  - CHOLELITHIASIS [None]
  - PAIN [None]
